FAERS Safety Report 14345021 (Version 1)
Quarter: 2018Q1

REPORT INFORMATION
  Report Type: Report from Study
  Country: US (occurrence: US)
  Receive Date: 20180103
  Receipt Date: 20180103
  Transmission Date: 20180509
  Serious: Yes (Other)
  Sender: FDA-Public Use
  Company Number: PHEH2017US042039

PATIENT
  Age: 42 Year
  Sex: Male

DRUGS (1)
  1. GILENYA [Suspect]
     Active Substance: FINGOLIMOD HYDROCHLORIDE
     Indication: MULTIPLE SCLEROSIS
     Dosage: 0.5 MG, QD
     Route: 048
     Dates: start: 20171023

REACTIONS (4)
  - Nasopharyngitis [Recovering/Resolving]
  - Kidney infection [Recovered/Resolved]
  - Cough [Recovering/Resolving]
  - Paranasal sinus discomfort [Recovering/Resolving]

NARRATIVE: CASE EVENT DATE: 20171101
